FAERS Safety Report 7324150-5 (Version None)
Quarter: 2011Q1

REPORT INFORMATION
  Report Type: 
  Country: None (occurrence: None)
  Receive Date: 20110301
  Receipt Date: 20110214
  Transmission Date: 20110831
  Serious: Yes (Hospitalization)
  Sender: FDA-Public Use
  Company Number: AU-MERCK-1102USA01546

PATIENT
  Sex: Male
  Weight: 70 kg

DRUGS (1)
  1. PROSCAR [Suspect]
     Route: 048
     Dates: start: 20090301, end: 20110101

REACTIONS (8)
  - NICOTINE DEPENDENCE [None]
  - DISSOCIATION [None]
  - ALCOHOL ABUSE [None]
  - ANGER [None]
  - ABNORMAL BEHAVIOUR [None]
  - IRRITABILITY [None]
  - DEPRESSION [None]
  - SELF INJURIOUS BEHAVIOUR [None]
